FAERS Safety Report 7775055-7 (Version None)
Quarter: 2011Q3

REPORT INFORMATION
  Report Type: 
  Country: None (occurrence: None)
  Receive Date: 20110923
  Receipt Date: 20110913
  Transmission Date: 20111222
  Serious: Yes (Other)
  Sender: FDA-Public Use
  Company Number: US-JNJFOC-20110608097

PATIENT
  Sex: Female
  Weight: 45 kg

DRUGS (12)
  1. MESALAMINE [Concomitant]
     Route: 048
  2. PROBIOTICS [Concomitant]
  3. REMICADE [Suspect]
     Route: 042
     Dates: start: 20100701
  4. REMICADE [Suspect]
     Route: 042
     Dates: start: 20100730
  5. SINGULAIR [Concomitant]
     Indication: ASTHMA
  6. APRISO [Concomitant]
  7. REMICADE [Suspect]
     Route: 042
     Dates: start: 20100604
  8. REMICADE [Suspect]
     Indication: INFLAMMATORY BOWEL DISEASE
     Route: 042
     Dates: start: 20100520
  9. REMICADE [Suspect]
     Route: 042
     Dates: start: 20110531
  10. BUDESONIDE [Concomitant]
  11. PREDNISONE [Concomitant]
     Route: 048
  12. OMEPRAZOLE [Concomitant]

REACTIONS (1)
  - ABSCESS LIMB [None]
